FAERS Safety Report 5698886-6 (Version None)
Quarter: 2008Q2

REPORT INFORMATION
  Report Type: 
  Country: None (occurrence: None)
  Receive Date: 20080408
  Receipt Date: 20060720
  Transmission Date: 20081010
  Serious: No
  Sender: FDA-Public Use
  Company Number: US-BAYER-US-2006-019671

PATIENT

DRUGS (1)
  1. ULTRAVIST 300 [Suspect]
     Indication: COMPUTERISED TOMOGRAM
     Dosage: UNIT DOSE: 80 ML
     Route: 042

REACTIONS (4)
  - ERYTHEMA [None]
  - EYE OEDEMA [None]
  - PARAESTHESIA ORAL [None]
  - URTICARIA [None]
